FAERS Safety Report 7979908-6 (Version None)
Quarter: 2011Q4

REPORT INFORMATION
  Report Type: 
  Country: None (occurrence: None)
  Receive Date: 20111208
  Receipt Date: 20111128
  Transmission Date: 20120403
  Serious: Yes (Hospitalization)
  Sender: FDA-Public Use
  Company Number: 2010SP049509

PATIENT
  Age: 68 Year
  Sex: Female

DRUGS (2)
  1. INTERFERON [Suspect]
     Indication: HEPATITIS C
     Dates: start: 20071001
  2. RIBAVIRIN [Suspect]
     Indication: HEPATITIS C
     Dates: start: 20071001

REACTIONS (5)
  - GLOMERULONEPHRITIS MEMBRANOUS [None]
  - DYSLIPIDAEMIA [None]
  - HYPOALBUMINAEMIA [None]
  - NEPHROTIC SYNDROME [None]
  - OEDEMA PERIPHERAL [None]
